FAERS Safety Report 4765156-X (Version None)
Quarter: 2005Q3

REPORT INFORMATION
  Report Type: 
  Country: None (occurrence: None)
  Receive Date: 20050906
  Receipt Date: 20050823
  Transmission Date: 20060218
  Serious: Yes (Other)
  Sender: FDA-Public Use
  Company Number: 2005105481

PATIENT
  Age: 52 Year
  Sex: Male
  Weight: 110.6777 kg

DRUGS (8)
  1. NORVASC [Suspect]
     Indication: HYPERTENSION
     Dosage: 5 MG (5 MG, 1 IN 1 D), ORAL
     Route: 048
     Dates: start: 20020101
  2. CHEMOTHERAPY NOS (CHEMOTHERAPY NOS) [Suspect]
     Indication: PANCREATIC CARCINOMA
     Dates: start: 20050101
  3. METFORMIN HCL [Concomitant]
  4. GLYBURIDE [Concomitant]
  5. RANITIDINE HCL [Concomitant]
  6. CLONIDINE [Concomitant]
  7. CENTRUM (MINERALS NOS, VITMAINS NOS) [Concomitant]
  8. HYDRALAZINE HCL [Concomitant]

REACTIONS (8)
  - CANCER PAIN [None]
  - DIAPHRAGMATIC DISORDER [None]
  - DIFFICULTY IN WALKING [None]
  - HICCUPS [None]
  - IMPAIRED WORK ABILITY [None]
  - METASTASES TO LIVER [None]
  - MUSCLE SPASMS [None]
  - PANCREATIC CARCINOMA [None]
